FAERS Safety Report 9271893 (Version 1)
Quarter: 2013Q2

REPORT INFORMATION
  Report Type: Report from Study
  Country: US (occurrence: US)
  Receive Date: 20130506
  Receipt Date: 20130506
  Transmission Date: 20140414
  Serious: Yes (Hospitalization, Other)
  Sender: FDA-Public Use
  Company Number: US-ROCHE-671462

PATIENT
  Age: 51 Year
  Sex: Male

DRUGS (4)
  1. MYCOPHENOLATE MOFETIL [Suspect]
     Indication: PROPHYLAXIS AGAINST TRANSPLANT REJECTION
     Route: 048
  2. CAPECITABINE [Suspect]
     Indication: SKIN CANCER
     Route: 048
  3. PREDNISONE [Suspect]
     Indication: PROPHYLAXIS AGAINST TRANSPLANT REJECTION
     Route: 048
  4. TACROLIMUS [Suspect]
     Indication: PROPHYLAXIS AGAINST TRANSPLANT REJECTION
     Route: 065

REACTIONS (10)
  - Cardiomyopathy [Recovering/Resolving]
  - Palmar-plantar erythrodysaesthesia syndrome [Unknown]
  - Tumour lysis syndrome [Unknown]
  - Gout [Recovering/Resolving]
  - Squamous cell carcinoma [Recovering/Resolving]
  - Basal cell carcinoma [Recovering/Resolving]
  - Blood creatinine increased [Unknown]
  - Fatigue [Unknown]
  - Myalgia [Unknown]
  - Diarrhoea [Recovering/Resolving]
